FAERS Safety Report 10553107 (Version 1)
Quarter: 2014Q4

REPORT INFORMATION
  Report Type: Spontaneous
  Country: GB (occurrence: GB)
  Receive Date: 20141030
  Receipt Date: 20141030
  Transmission Date: 20150529
  Serious: Yes (Hospitalization)
  Sender: FDA-Public Use
  Company Number: PHHY2014GB138778

PATIENT
  Age: 41 Year
  Sex: Female

DRUGS (10)
  1. CO-AMOXICLAV [Suspect]
     Active Substance: AMOXICILLIN\CLAVULANIC ACID
     Indication: URINARY TRACT INFECTION
     Route: 048
  2. CEFTRIAXONE. [Suspect]
     Active Substance: CEFTRIAXONE
     Indication: PRODUCT USED FOR UNKNOWN INDICATION
     Route: 042
  3. INTRALIPID [Suspect]
     Active Substance: EGG PHOSPHOLIPIDS\GLYCERIN\SOYBEAN OIL
     Indication: PRODUCT USED FOR UNKNOWN INDICATION
     Route: 065
  4. PREDNISOLONE. [Suspect]
     Active Substance: PREDNISOLONE
     Indication: IMMUNOSUPPRESSION
     Route: 065
     Dates: start: 201110
  5. OXYTOCIN. [Suspect]
     Active Substance: OXYTOCIN
     Indication: PRODUCT USED FOR UNKNOWN INDICATION
     Route: 065
  6. PREDNISOLONE. [Suspect]
     Active Substance: PREDNISOLONE
     Route: 065
     Dates: start: 201202
  7. ADALIMUMAB [Suspect]
     Active Substance: ADALIMUMAB
     Indication: PRODUCT USED FOR UNKNOWN INDICATION
     Route: 065
     Dates: start: 201108
  8. AMBISOME [Suspect]
     Active Substance: AMPHOTERICIN B
     Indication: PRODUCT USED FOR UNKNOWN INDICATION
     Route: 042
  9. PREDNISOLONE. [Suspect]
     Active Substance: PREDNISOLONE
     Route: 065
     Dates: start: 201204
  10. ERYTHROMYCIN. [Suspect]
     Active Substance: ERYTHROMYCIN
     Indication: PRODUCT USED FOR UNKNOWN INDICATION
     Route: 065

REACTIONS (17)
  - Streptococcal infection [Unknown]
  - Candida infection [Unknown]
  - Pyrexia [Unknown]
  - Malaise [Unknown]
  - Cervix enlargement [Unknown]
  - Abdominal pain [Unknown]
  - Oligohydramnios [Unknown]
  - Splenomegaly [Unknown]
  - Feeling abnormal [Unknown]
  - Decreased appetite [Unknown]
  - Inflammatory marker increased [Unknown]
  - Maternal exposure during pregnancy [Unknown]
  - Vaginal haemorrhage [Unknown]
  - Pollakiuria [Unknown]
  - Back pain [Unknown]
  - Neutrophilia [Unknown]
  - Chills [Unknown]

NARRATIVE: CASE EVENT DATE: 20120810
